FAERS Safety Report 15848325 (Version 4)
Quarter: 2020Q1

REPORT INFORMATION
  Report Type: Spontaneous
  Country: US (occurrence: US)
  Receive Date: 20190121
  Receipt Date: 20200206
  Transmission Date: 20200409
  Serious: No
  Sender: FDA-Public Use
  Company Number: US-PFIZER INC-2019023141

PATIENT
  Age: 55 Year
  Sex: Female
  Weight: 62.59 kg

DRUGS (4)
  1. TRICOR [Suspect]
     Active Substance: FENOFIBRATE
     Dosage: UNK
  2. DEMEROL [Suspect]
     Active Substance: MEPERIDINE HYDROCHLORIDE
     Dosage: UNK
  3. CODEINE [Suspect]
     Active Substance: CODEINE
     Dosage: UNK
  4. TRIGLIDE [Suspect]
     Active Substance: FENOFIBRATE
     Dosage: UNK

REACTIONS (1)
  - Drug hypersensitivity [Unknown]
